FAERS Safety Report 11230327 (Version 2)
Quarter: 2015Q3

REPORT INFORMATION
  Report Type: Spontaneous
  Country: US (occurrence: None)
  Receive Date: 20150629
  Receipt Date: 20150706
  Transmission Date: 20151125
  Serious: Yes (Other)
  Sender: FDA-Public Use
  Company Number: 2015-001302

PATIENT
  Age: 63 Year
  Sex: Female

DRUGS (1)
  1. ESTRACE [Suspect]
     Active Substance: ESTRADIOL
     Route: 067
     Dates: start: 20150423, end: 20150506

REACTIONS (4)
  - Breast neoplasm [None]
  - Breast mass [None]
  - Dizziness [None]
  - Adverse drug reaction [None]

NARRATIVE: CASE EVENT DATE: 20150423
